FAERS Safety Report 14473912 (Version 1)
Quarter: 2018Q1

REPORT INFORMATION
  Report Type: Spontaneous
  Country: US (occurrence: US)
  Receive Date: 20180201
  Receipt Date: 20180201
  Transmission Date: 20180509
  Serious: No
  Sender: FDA-Public Use
  Company Number: US-BAYER-2018-020440

PATIENT
  Age: 82 Year
  Sex: Female
  Weight: 71 kg

DRUGS (2)
  1. MIRALAX [Suspect]
     Active Substance: POLYETHYLENE GLYCOL 3350
     Indication: COLONOSCOPY
     Dosage: 237GRAMS DOSE
     Route: 048
  2. DULCOLAX PICOSULFAT [Concomitant]
     Active Substance: SODIUM PICOSULFATE

REACTIONS (3)
  - Product use issue [Unknown]
  - Wrong technique in product usage process [Unknown]
  - Off label use [Unknown]
